FAERS Safety Report 4284535-0 (Version None)
Quarter: 2004Q1

REPORT INFORMATION
  Report Type: 
  Country: None (occurrence: None)
  Receive Date: 20040130
  Receipt Date: 20040114
  Transmission Date: 20041129
  Serious: Yes (Life-Threatening, Hospitalization)
  Sender: FDA-Public Use
  Company Number: DE_040112723

PATIENT
  Age: 44 Year
  Sex: Male
  Weight: 95 kg

DRUGS (8)
  1. XIGRIS [Suspect]
     Indication: MULTI-ORGAN FAILURE
     Dosage: 54.7 MG/DAY
     Dates: start: 20031030, end: 20031030
  2. XIGRIS [Suspect]
     Indication: SEPSIS
     Dosage: 54.7 MG/DAY
     Dates: start: 20031030, end: 20031030
  3. TAZOBAC [Concomitant]
  4. SUFENTANIL [Concomitant]
  5. MIDAZOLAM HCL [Concomitant]
  6. NOREPINEPHRINE [Concomitant]
  7. HYDROCORTISONE [Concomitant]
  8. FUROSEMIDE [Concomitant]

REACTIONS (4)
  - ACTIVATED PARTIAL THROMBOPLASTIN TIME PROLONGED [None]
  - HAEMOGLOBIN DECREASED [None]
  - HAEMORRHAGE [None]
  - PLATELET COUNT DECREASED [None]
